FAERS Safety Report 5036253-9 (Version None)
Quarter: 2006Q2

REPORT INFORMATION
  Report Type: 
  Country: None (occurrence: None)
  Receive Date: 20060601
  Receipt Date: 20060428
  Transmission Date: 20061013
  Serious: No
  Sender: FDA-Public Use
  Company Number: US200605000170

PATIENT
  Age: 71 Year
  Sex: Female

DRUGS (5)
  1. FORTEO [Suspect]
     Indication: OSTEOPOROSIS
     Dates: start: 20060404
  2. CYMBALTA [Suspect]
     Indication: ANXIETY
     Dosage: 60 MG, DAILY (1/D)
     Dates: start: 20060401
  3. FORTEO [Concomitant]
  4. LORAZEPAM [Concomitant]
  5. PERCOCET [Concomitant]

REACTIONS (8)
  - ANXIETY [None]
  - CRYING [None]
  - FEELING ABNORMAL [None]
  - FEELING JITTERY [None]
  - GAIT DISTURBANCE [None]
  - NAUSEA [None]
  - PAIN [None]
  - PERSONALITY CHANGE [None]
